FAERS Safety Report 22972596 (Version 2)
Quarter: 2023Q4

REPORT INFORMATION
  Report Type: Report from Study
  Country: TH (occurrence: TH)
  Receive Date: 20230922
  Receipt Date: 20231124
  Transmission Date: 20240109
  Serious: Yes (Death)
  Sender: FDA-Public Use
  Company Number: TH-002147023-NVSC2023TH024976

PATIENT
  Sex: Female

DRUGS (3)
  1. KISQALI [Suspect]
     Active Substance: RIBOCICLIB
     Indication: Breast cancer metastatic
     Dosage: UNK, (AROUND NOV OR DEC 2022)
     Route: 048
  2. KISQALI [Suspect]
     Active Substance: RIBOCICLIB
     Dosage: UNK
     Route: 048
     Dates: start: 202301, end: 202302
  3. KISQALI [Suspect]
     Active Substance: RIBOCICLIB
     Dosage: 200 MG (STOP DATE- JUN TO JUL 2023)
     Route: 048

REACTIONS (5)
  - Death [Fatal]
  - Illness [Unknown]
  - Blood disorder [Unknown]
  - Peripheral swelling [Recovering/Resolving]
  - Anaemia [Unknown]
